FAERS Safety Report 16455686 (Version 1)
Quarter: 2019Q2

REPORT INFORMATION
  Report Type: Spontaneous
  Country: US (occurrence: US)
  Receive Date: 20190619
  Receipt Date: 20190619
  Transmission Date: 20190711
  Serious: No
  Sender: FDA-Public Use
  Company Number: US-TEIKOKU PHARMA USA-TPU2019-00484

PATIENT
  Sex: Female
  Weight: 77.18 kg

DRUGS (2)
  1. THERMACARE HEATWRAPS [Concomitant]
     Active Substance: ACTIVATED CHARCOAL\IRON\SODIUM
  2. LIDODERM [Suspect]
     Active Substance: LIDOCAINE
     Indication: INJURY

REACTIONS (2)
  - Dysphonia [Unknown]
  - Drug ineffective for unapproved indication [Unknown]
